FAERS Safety Report 8928507 (Version 2)
Quarter: 2012Q4

REPORT INFORMATION
  Report Type: 
  Country: IT (occurrence: IT)
  Receive Date: 20121128
  Receipt Date: 20121225
  Transmission Date: 20130627
  Serious: Yes (Other)
  Sender: FDA-Public Use
  Company Number: IT-SANOFI-AVENTIS-2012SA085220

PATIENT
  Age: 84 Year
  Sex: Female

DRUGS (6)
  1. LASIX [Suspect]
     Indication: DRUG USE FOR UNKNOWN INDICATION
     Dosage: Dose: 2 posologic units
     Route: 048
     Dates: start: 20110910, end: 20120909
  2. OLMESARTAN MEDOXOMIL [Suspect]
     Indication: DRUG USE FOR UNKNOWN INDICATION
     Route: 048
     Dates: start: 20110910, end: 20120909
  3. AMLODIPINE BESILATE [Suspect]
     Indication: DRUG USE FOR UNKNOWN INDICATION
     Route: 048
     Dates: start: 20110910, end: 20120909
  4. ALLOPURINOL [Concomitant]
  5. GLIBENCLAMIDE [Concomitant]
     Route: 048
  6. WARFARIN [Concomitant]
     Dosage: strength: 5 mg

REACTIONS (1)
  - Syncope [Recovering/Resolving]
